FAERS Safety Report 24691005 (Version 1)
Quarter: 2024Q4

REPORT INFORMATION
  Report Type: Spontaneous
  Country: US (occurrence: US)
  Receive Date: 20241203
  Receipt Date: 20241203
  Transmission Date: 20250115
  Serious: No
  Sender: PAREXEL
  Company Number: US-NOVEN PHARMACEUTICALS, INC.-2024-NOV-US001059

PATIENT
  Sex: Female
  Weight: 50.34 kg

DRUGS (4)
  1. ESTRADIOL [Suspect]
     Active Substance: ESTRADIOL
     Indication: Menopause
     Dosage: 0.0375 MILLIGRAM, 3-4 DAYS
     Route: 062
  2. ESTRADIOL [Suspect]
     Active Substance: ESTRADIOL
     Indication: Hot flush
     Dosage: 0.0375 MILLIGRAM, 3-4 DAYS
     Route: 062
  3. ESTRADIOL [Suspect]
     Active Substance: ESTRADIOL
     Indication: Bone loss
  4. ESTRADIOL [Suspect]
     Active Substance: ESTRADIOL
     Indication: Amnesia

REACTIONS (3)
  - Product dose omission issue [Not Recovered/Not Resolved]
  - Device issue [Not Recovered/Not Resolved]
  - No adverse event [Unknown]

NARRATIVE: CASE EVENT DATE: 20240101
